FAERS Safety Report 8058102-7 (Version None)
Quarter: 2012Q1

REPORT INFORMATION
  Report Type: 
  Country: None (occurrence: None)
  Receive Date: 20120118
  Receipt Date: 20120118
  Transmission Date: 20120608
  Serious: Yes (Death)
  Sender: FDA-Public Use
  Company Number: None

PATIENT
  Age: 73 Year
  Sex: Female

DRUGS (8)
  1. PANTOPRAZOLE [Concomitant]
  2. SEVELAMER [Concomitant]
  3. MIRALAX [Concomitant]
  4. REVLIMID [Suspect]
     Indication: MULTIPLE MYELOMA
     Dosage: 5 MG DAILY X 28 DAYS ORALLY
     Route: 048
     Dates: start: 20111220, end: 20120108
  5. MORPHINE [Concomitant]
  6. REGLAN [Concomitant]
  7. ONDANSETRON [Concomitant]
  8. PERCOCET [Concomitant]

REACTIONS (7)
  - HYPOXIA [None]
  - ASTHENIA [None]
  - CONFUSIONAL STATE [None]
  - HYPOTENSION [None]
  - TACHYCARDIA [None]
  - CARDIAC FAILURE CONGESTIVE [None]
  - PNEUMONIA [None]
